FAERS Safety Report 4375510-6 (Version None)
Quarter: 2004Q2

REPORT INFORMATION
  Report Type: 
  Country: None (occurrence: None)
  Receive Date: 20040607
  Receipt Date: 20040527
  Transmission Date: 20050107
  Serious: Yes (Other)
  Sender: FDA-Public Use
  Company Number: 2004-02390

PATIENT
  Age: 53 Year
  Sex: Female
  Weight: 54 kg

DRUGS (2)
  1. OXYCODONE HYDROCHLORIDE AND ACETAMINOPHEN [Suspect]
     Indication: BACK PAIN
     Dosage: 1 TABLET, PRN, ORAL
     Route: 048
     Dates: start: 20010101
  2. MS CONTIN [Suspect]
     Indication: BACK PAIN
     Dosage: 90 MG, DAILY, ORAL
     Route: 048
     Dates: start: 19980101, end: 20010101

REACTIONS (5)
  - BREAST CANCER FEMALE [None]
  - CARDIAC DISORDER [None]
  - CHEST PAIN [None]
  - EXTRASYSTOLES [None]
  - MEMORY IMPAIRMENT [None]
